FAERS Safety Report 10186459 (Version 1)
Quarter: 2014Q2

REPORT INFORMATION
  Report Type: Spontaneous
  Country: US (occurrence: US)
  Receive Date: 20140521
  Receipt Date: 20140521
  Transmission Date: 20141212
  Serious: No
  Sender: FDA-Public Use
  Company Number: US-ASTRAZENECA-2013SE72208

PATIENT
  Age: 88 Year
  Sex: Female
  Weight: 62.1 kg

DRUGS (1)
  1. PULMICORT FLEXHALER [Suspect]
     Indication: ASTHMA
     Dosage: 180 MCG 1 PUFF BID
     Route: 055

REACTIONS (6)
  - Body height decreased [Unknown]
  - Dyspnoea [Unknown]
  - Mental impairment [Unknown]
  - Rash macular [Not Recovered/Not Resolved]
  - Off label use [Unknown]
  - Drug dose omission [Unknown]
